FAERS Safety Report 17532130 (Version 2)
Quarter: 2020Q1

REPORT INFORMATION
  Report Type: Report from Study
  Country: None (occurrence: CA)
  Receive Date: 20200311
  Receipt Date: 20200316
  Transmission Date: 20200409
  Serious: No
  Sender: FDA-Public Use
  Company Number: CA-ABBVIE-20K-028-3274902-00

PATIENT
  Age: 34 Year
  Sex: Female

DRUGS (1)
  1. HUMIRA [Suspect]
     Active Substance: ADALIMUMAB
     Indication: HIDRADENITIS
     Route: 058
     Dates: start: 20190503, end: 20200211

REACTIONS (9)
  - Swelling [Recovering/Resolving]
  - Wound secretion [Not Recovered/Not Resolved]
  - Drug ineffective [Recovering/Resolving]
  - Skin haemorrhage [Not Recovered/Not Resolved]
  - Pain [Unknown]
  - Purulence [Unknown]
  - Pyrexia [Unknown]
  - Skin lesion [Recovering/Resolving]
  - Pain [Recovering/Resolving]

NARRATIVE: CASE EVENT DATE: 202002
